FAERS Safety Report 5391315-1 (Version None)
Quarter: 2007Q3

REPORT INFORMATION
  Report Type: 
  Country: None (occurrence: None)
  Receive Date: 20070719
  Receipt Date: 20070713
  Transmission Date: 20080115
  Serious: Yes (Death)
  Sender: FDA-Public Use
  Company Number: A0664916A

PATIENT
  Age: 95 Year
  Sex: Male
  Weight: 60 kg

DRUGS (4)
  1. SERETIDE [Suspect]
     Indication: CHRONIC OBSTRUCTIVE PULMONARY DISEASE
     Dates: start: 20030101, end: 20070704
  2. TIOTROPIUM BROMIDE [Concomitant]
     Dates: start: 20070701, end: 20070704
  3. CHLORTHALIDONE [Concomitant]
     Dates: start: 19970101, end: 20070704
  4. PREDNISONE [Concomitant]
     Dates: start: 20070604, end: 20070704

REACTIONS (1)
  - DEATH [None]
